FAERS Safety Report 18505182 (Version 2)
Quarter: 2021Q1

REPORT INFORMATION
  Report Type: Spontaneous
  Country: US (occurrence: US)
  Receive Date: 20201116
  Receipt Date: 20210210
  Transmission Date: 20210419
  Serious: No
  Sender: FDA-Public Use
  Company Number: US-ASTRAZENECA-2020SF40268

PATIENT
  Sex: Female
  Weight: 50.8 kg

DRUGS (2)
  1. INSULIN [Concomitant]
     Active Substance: INSULIN NOS
  2. SYMLIN [Suspect]
     Active Substance: PRAMLINTIDE ACETATE
     Indication: TYPE 1 DIABETES MELLITUS
     Route: 058

REACTIONS (4)
  - Hyperglycaemia [Recovering/Resolving]
  - Device issue [Unknown]
  - Intentional product misuse [Unknown]
  - Hypoglycaemia [Recovering/Resolving]
